FAERS Safety Report 16845220 (Version 3)
Quarter: 2019Q4

REPORT INFORMATION
  Report Type: Spontaneous
  Country: US (occurrence: US)
  Receive Date: 20190924
  Receipt Date: 20191023
  Transmission Date: 20200122
  Serious: No
  Sender: FDA-Public Use
  Company Number: US-PFIZER INC-2019411915

PATIENT
  Age: 62 Year
  Sex: Female
  Weight: 54 kg

DRUGS (3)
  1. PREGABALIN. [Suspect]
     Active Substance: PREGABALIN
     Indication: NERVE INJURY
     Dosage: 700 MG, DAILY (200MG ONCE IN THE MORNING AND ONCE IN THE AFTERNOON, 300MG ONCE AT NIGHT)
     Route: 048
  2. PREGABALIN. [Suspect]
     Active Substance: PREGABALIN
     Indication: NEURALGIA
  3. PREGABALIN. [Suspect]
     Active Substance: PREGABALIN
     Indication: SPINAL CORD INJURY

REACTIONS (2)
  - Drug ineffective [Unknown]
  - Overdose [Unknown]

NARRATIVE: CASE EVENT DATE: 20190826
